FAERS Safety Report 4774959-7 (Version None)
Quarter: 2005Q3

REPORT INFORMATION
  Report Type: 
  Country: None (occurrence: None)
  Receive Date: 20050921
  Receipt Date: 20050913
  Transmission Date: 20060218
  Serious: Yes (Hospitalization)
  Sender: FDA-Public Use
  Company Number: US-JNJFOC-20050903713

PATIENT
  Sex: Female

DRUGS (6)
  1. KETOCONAZOLE [Suspect]
     Indication: BREAST CANCER METASTATIC
     Route: 048
     Dates: start: 20050813, end: 20050818
  2. BM8-354825 [Suspect]
     Indication: BREAST CANCER METASTATIC
  3. LORCET-HD [Concomitant]
  4. LORCET-HD [Concomitant]
  5. MS CONTIN [Concomitant]
  6. MSIR [Concomitant]

REACTIONS (2)
  - MALIGNANT PLEURAL EFFUSION [None]
  - PYREXIA [None]
